FAERS Safety Report 9778648 (Version 2)
Quarter: 2014Q2

REPORT INFORMATION
  Report Type: Spontaneous
  Country: US (occurrence: None)
  Receive Date: 20131219
  Receipt Date: 20140411
  Transmission Date: 20141212
  Serious: No
  Sender: FDA-Public Use
  Company Number: 2013-US-004321

PATIENT
  Age: 70 Year
  Sex: Female

DRUGS (2)
  1. XYREM [Suspect]
     Indication: NARCOLEPSY
     Dosage: 3 G, BID, ORAL
     Route: 048
     Dates: start: 201312
  2. XYREM [Suspect]
     Indication: SOMNOLENCE
     Dosage: 3 G, BID, ORAL
     Route: 048
     Dates: start: 201312

REACTIONS (1)
  - Headache [None]
